FAERS Safety Report 8760951 (Version 3)
Quarter: 2012Q4

REPORT INFORMATION
  Report Type: 
  Country: US (occurrence: US)
  Receive Date: 20120830
  Receipt Date: 20120911
  Transmission Date: 20130627
  Serious: Yes (Other)
  Sender: FDA-Public Use
  Company Number: PHEH2012US013139

PATIENT
  Sex: Female

DRUGS (12)
  1. GILENYA [Suspect]
     Indication: RELAPSING-REMITTING MULTIPLE SCLEROSIS
     Dosage: UNK UKN, QD
     Route: 048
     Dates: start: 201204, end: 201207
  2. VITAMIN D [Concomitant]
     Dosage: UNK UKN, UNK
  3. BACLOFEN [Concomitant]
     Dosage: UNK UKN, UNK
  4. WELLBUTRIN [Concomitant]
     Dosage: UNK UKN, UNK
  5. GABAPENTIN [Concomitant]
     Dosage: UNK UKN, UNK
  6. VALIUM [Concomitant]
     Dosage: UNK UKN, UNK
  7. LORTAB [Concomitant]
     Dosage: UNK UKN, UNK
  8. METOPROLOL [Concomitant]
     Dosage: UNK UKN, UNK
  9. NORVASC [Concomitant]
     Dosage: UNK UKN, UNK
  10. OMEPRAZOLE [Concomitant]
     Dosage: UNK UKN, UNK
  11. PROZAC [Concomitant]
     Dosage: UNK UKN, UNK
  12. ZOCOR [Concomitant]
     Dosage: UNK UKN, UNK

REACTIONS (2)
  - Decubitus ulcer [Unknown]
  - Osteomyelitis [Recovered/Resolved]
